FAERS Safety Report 21045653 (Version 1)
Quarter: 2022Q3

REPORT INFORMATION
  Report Type: Spontaneous
  Country: US (occurrence: US)
  Receive Date: 20220706
  Receipt Date: 20220706
  Transmission Date: 20221026
  Serious: Yes (Other)
  Sender: FDA-Public Use
  Company Number: US-SA-SAC20220630000141

PATIENT
  Age: 61 Year

DRUGS (1)
  1. GOLD BOND ORIGINAL STRENGTH POWDER [Suspect]
     Active Substance: MENTHOL\ZINC OXIDE
     Dosage: UNK
     Route: 065

REACTIONS (2)
  - Mesothelioma [Not Recovered/Not Resolved]
  - Occupational exposure to product [Not Recovered/Not Resolved]

NARRATIVE: CASE EVENT DATE: 20220101
